FAERS Safety Report 16754093 (Version 1)
Quarter: 2019Q3

REPORT INFORMATION
  Report Type: Spontaneous
  Country: GB (occurrence: GB)
  Receive Date: 20190829
  Receipt Date: 20190829
  Transmission Date: 20191005
  Serious: Yes (Hospitalization, Disabling, Other)
  Sender: FDA-Public Use
  Company Number: GB-BRISTOL-MYERS SQUIBB COMPANY-BMS-2019-082802

PATIENT
  Age: 83 Year
  Sex: Female
  Weight: 53 kg

DRUGS (9)
  1. ONEALFA [Concomitant]
     Active Substance: ALFACALCIDOL
     Indication: PRODUCT USED FOR UNKNOWN INDICATION
     Dosage: 1 DOSAGE FORM, QD
     Route: 065
     Dates: start: 20190517, end: 20190724
  2. TRIMETHOPRIM. [Concomitant]
     Active Substance: TRIMETHOPRIM
     Indication: PRODUCT USED FOR UNKNOWN INDICATION
     Dosage: 2 DOSAGE FORM, QD FOR 3 DAYS
     Route: 065
     Dates: start: 20190607, end: 20190610
  3. NITROFURANTOIN. [Concomitant]
     Active Substance: NITROFURANTOIN
     Indication: INFECTION
     Dosage: 2 DOSAGE FORM, QD (FOR 3 DAYS)
     Route: 065
     Dates: start: 20190604, end: 20190607
  4. CASSIA ACUTIFOLIA [Concomitant]
     Indication: CONSTIPATION
     Dosage: TAKE 1 OR 2 AT NIGHT
     Route: 065
     Dates: start: 20190618
  5. LEVOTHYROXINE. [Concomitant]
     Active Substance: LEVOTHYROXINE
     Indication: HYPOTHYROIDISM
     Dosage: 1 DOSAGE FORM, QD EACH MORNING
     Route: 065
     Dates: start: 20190328
  6. APIXABAN [Suspect]
     Active Substance: APIXABAN
     Indication: CEREBROVASCULAR ACCIDENT PROPHYLAXIS
     Dosage: 5 MILLIGRAM, BID (MORNING AND EVENING)
     Route: 065
     Dates: start: 20190101, end: 20190724
  7. ATORVASTATIN [Concomitant]
     Active Substance: ATORVASTATIN
     Indication: PRODUCT USED FOR UNKNOWN INDICATION
     Dosage: EACH EVENING
     Route: 065
     Dates: start: 20190328, end: 20190701
  8. OLIVE OIL [Concomitant]
     Active Substance: OLIVE OIL
     Indication: PRODUCT USED FOR UNKNOWN INDICATION
     Dosage: USE AS DIRECTED
     Route: 065
     Dates: start: 20190516, end: 20190613
  9. INDAPAMIDE. [Concomitant]
     Active Substance: INDAPAMIDE
     Indication: PRODUCT USED FOR UNKNOWN INDICATION
     Dosage: 1 DOSAGE FORM, QD EACH MORNING
     Route: 065
     Dates: start: 20190403, end: 20190724

REACTIONS (3)
  - Head injury [Unknown]
  - Cerebral haemorrhage [Not Recovered/Not Resolved]
  - Fall [Unknown]

NARRATIVE: CASE EVENT DATE: 20190715
